FAERS Safety Report 23052340 (Version 1)
Quarter: 2023Q4

REPORT INFORMATION
  Report Type: Spontaneous
  Country: US (occurrence: US)
  Receive Date: 20231010
  Receipt Date: 20231010
  Transmission Date: 20240110
  Serious: No
  Sender: FDA-Public Use
  Company Number: US-Blueprint Medicines Corporation-1531

PATIENT
  Sex: Female

DRUGS (1)
  1. AYVAKIT [Suspect]
     Active Substance: AVAPRITINIB
     Indication: Gastrointestinal stromal tumour
     Route: 065

REACTIONS (6)
  - Blood test abnormal [Unknown]
  - Headache [Unknown]
  - Diarrhoea [Unknown]
  - Memory impairment [Unknown]
  - White blood cell count decreased [Unknown]
  - Thyroid mass [Unknown]
